FAERS Safety Report 9467419 (Version 1)
Quarter: 2013Q3

REPORT INFORMATION
  Report Type: Spontaneous
  Country: US (occurrence: None)
  Receive Date: 20130819
  Receipt Date: 20130819
  Transmission Date: 20140515
  Serious: Yes (Hospitalization)
  Sender: FDA-Public Use
  Company Number: None

PATIENT
  Age: 69 Year
  Sex: Female
  Weight: 91.2 kg

DRUGS (8)
  1. SULFASALAZINE [Suspect]
     Indication: RHEUMATOID ARTHRITIS
     Dosage: 2 PILLS  BID  ORAL
     Route: 048
     Dates: start: 20130419, end: 20130603
  2. LOTREL [Concomitant]
  3. GABAPENTIN [Concomitant]
  4. TYLENOL #3 [Concomitant]
  5. PREDNISONE [Concomitant]
  6. MULTIVITAMIN [Concomitant]
  7. FISH OIL [Concomitant]
  8. GLUCOSAMINE CHONDROITIN [Concomitant]

REACTIONS (6)
  - Hepatitis acute [None]
  - Lethargy [None]
  - Asthenia [None]
  - Rash [None]
  - Sensation of foreign body [None]
  - Decreased appetite [None]
